FAERS Safety Report 20387055 (Version 1)
Quarter: 2022Q1

REPORT INFORMATION
  Report Type: Spontaneous
  Country: US (occurrence: US)
  Receive Date: 20220127
  Receipt Date: 20220127
  Transmission Date: 20220424
  Serious: No
  Sender: FDA-Public Use
  Company Number: US-ALLERGAN-2121144US

PATIENT
  Age: 37 Year
  Sex: Female

DRUGS (5)
  1. BOTOX [Suspect]
     Active Substance: ONABOTULINUMTOXINA
     Indication: Migraine
     Dosage: 155 UNITS, SINGLE
     Dates: start: 20210524, end: 20210524
  2. ALBUTEROL [Concomitant]
     Active Substance: ALBUTEROL
  3. PHENTERMINE [Concomitant]
     Active Substance: PHENTERMINE
  4. HYDROXYZINE [Concomitant]
     Active Substance: HYDROXYZINE HYDROCHLORIDE
  5. AMITRIPTYLINE [Concomitant]
     Active Substance: AMITRIPTYLINE

REACTIONS (1)
  - Ageusia [Not Recovered/Not Resolved]

NARRATIVE: CASE EVENT DATE: 20210524
